FAERS Safety Report 6451625-3 (Version None)
Quarter: 2009Q4

REPORT INFORMATION
  Report Type: 
  Country: None (occurrence: None)
  Receive Date: 20091123
  Receipt Date: 20091110
  Transmission Date: 20100525
  Serious: Yes (Hospitalization)
  Sender: FDA-Public Use
  Company Number: PHHY2009DE49648

PATIENT
  Age: 39 Year
  Sex: Male

DRUGS (2)
  1. CYCLOSPORINE [Suspect]
     Indication: RENAL TRANSPLANT
     Dosage: UNK
     Dates: start: 20000901
  2. TACROLIMUS [Suspect]
     Indication: RENAL TRANSPLANT
     Dosage: UNK
     Dates: start: 20000901

REACTIONS (6)
  - CHRONIC MYELOID LEUKAEMIA [None]
  - CYTOGENETIC ANALYSIS ABNORMAL [None]
  - DIFFERENTIAL WHITE BLOOD CELL COUNT ABNORMAL [None]
  - EOSINOPHILIA [None]
  - MARROW HYPERPLASIA [None]
  - PYREXIA [None]
